FAERS Safety Report 16591729 (Version 6)
Quarter: 2025Q2

REPORT INFORMATION
  Report Type: Spontaneous
  Country: US (occurrence: US)
  Receive Date: 20190718
  Receipt Date: 20250625
  Transmission Date: 20250717
  Serious: Yes (Other)
  Sender: SANOFI AVENTIS
  Company Number: US-SA-2019SA195033

PATIENT
  Age: 51 Year
  Sex: Male
  Weight: 143.18 kg

DRUGS (18)
  1. DUPIXENT [Suspect]
     Active Substance: DUPILUMAB
     Indication: Idiopathic urticaria
     Route: 058
  2. DUPIXENT [Suspect]
     Active Substance: DUPILUMAB
     Indication: Dermatitis atopic
     Dosage: 300 MG, QOW
     Route: 058
     Dates: start: 2019
  3. DUPIXENT [Suspect]
     Active Substance: DUPILUMAB
     Indication: Multiple allergies
  4. DUPIXENT [Suspect]
     Active Substance: DUPILUMAB
     Indication: Eczema
  5. DUPIXENT [Suspect]
     Active Substance: DUPILUMAB
     Indication: Idiopathic urticaria
     Dosage: 300 MG, QOW
     Route: 058
     Dates: start: 2018
  6. DUPIXENT [Suspect]
     Active Substance: DUPILUMAB
     Indication: Dermatitis atopic
  7. DUPIXENT [Suspect]
     Active Substance: DUPILUMAB
     Indication: Multiple allergies
  8. DUPIXENT [Suspect]
     Active Substance: DUPILUMAB
     Indication: Eczema
  9. AMLODIPINE BESYLATE [Concomitant]
     Active Substance: AMLODIPINE BESYLATE
  10. MONTELUKAST SODIUM [Concomitant]
     Active Substance: MONTELUKAST SODIUM
  11. LISINOPRIL [Concomitant]
     Active Substance: LISINOPRIL
  12. TOPROL XL [Concomitant]
     Active Substance: METOPROLOL SUCCINATE
  13. CEPHALEXIN [Concomitant]
     Active Substance: CEPHALEXIN
  14. EUCRISA [Concomitant]
     Active Substance: CRISABOROLE
  15. TRIAMCINOLONE ACETONIDE [Concomitant]
     Active Substance: TRIAMCINOLONE ACETONIDE
  16. AMOXICILLIN [Concomitant]
     Active Substance: AMOXICILLIN
  17. LEVOTHYROXINE SODIUM [Concomitant]
     Active Substance: LEVOTHYROXINE SODIUM
  18. METOPROLOL SUCCINATE [Concomitant]
     Active Substance: METOPROLOL SUCCINATE

REACTIONS (16)
  - Staphylococcal infection [Unknown]
  - Sepsis [Unknown]
  - Lip dry [Unknown]
  - Condition aggravated [Unknown]
  - Dry skin [Unknown]
  - Condition aggravated [Unknown]
  - Chapped lips [Unknown]
  - Skin fissures [Unknown]
  - Lip exfoliation [Unknown]
  - Skin exfoliation [Unknown]
  - Erythema [Unknown]
  - Eczema [Unknown]
  - Rash [Unknown]
  - Product dose omission issue [Unknown]
  - Product use in unapproved indication [Unknown]
  - Off label use [Unknown]

NARRATIVE: CASE EVENT DATE: 20180101
